FAERS Safety Report 5675144-7 (Version None)
Quarter: 2008Q2

REPORT INFORMATION
  Report Type: 
  Country: None (occurrence: None)
  Receive Date: 20080303
  Receipt Date: 20070321
  Transmission Date: 20081010
  Serious: Yes (Hospitalization, Other)
  Sender: FDA-Public Use
  Company Number: RB-5639-2007

PATIENT
  Sex: Male

DRUGS (2)
  1. SUBOXONE [Suspect]
     Dosage: SUBLINGUAL
     Route: 060
  2. TYLENOL [Suspect]
     Dosage: TAKING APPROX 4-5 GMS PER DAY ORAL
     Route: 048

REACTIONS (1)
  - HEPATIC FAILURE [None]
